FAERS Safety Report 25064006 (Version 2)
Quarter: 2025Q3

REPORT INFORMATION
  Report Type: Spontaneous
  Country: EU (occurrence: EU)
  Receive Date: 20250311
  Receipt Date: 20250718
  Transmission Date: 20251020
  Serious: Yes (Other)
  Sender: ACCORD
  Company Number: EU-Accord-473265

PATIENT
  Age: 36 Year
  Sex: Male

DRUGS (1)
  1. FINASTERIDE [Suspect]
     Active Substance: FINASTERIDE
     Indication: Alopecia
     Route: 048
     Dates: start: 20130204, end: 20250204

REACTIONS (4)
  - Oligoasthenozoospermia [Unknown]
  - Necrospermia [Unknown]
  - Spermatozoa abnormal [Unknown]
  - Spermatogenesis abnormal [Unknown]

NARRATIVE: CASE EVENT DATE: 20240101
